FAERS Safety Report 6844458-7 (Version None)
Quarter: 2010Q3

REPORT INFORMATION
  Report Type: 
  Country: None (occurrence: None)
  Receive Date: 20100715
  Receipt Date: 20100706
  Transmission Date: 20110219
  Serious: Yes (Hospitalization, Other)
  Sender: FDA-Public Use
  Company Number: US-JNJFOC-20100702408

PATIENT
  Age: 29 Year
  Sex: Female
  Weight: 72.7 kg

DRUGS (11)
  1. TOPIRAMATE [Suspect]
     Indication: MIGRAINE PROPHYLAXIS
     Route: 048
  2. TOPIRAMATE [Suspect]
     Route: 048
  3. FLUOXETINE HCL [Concomitant]
     Route: 048
  4. BACLOFEN [Concomitant]
     Route: 037
  5. POLYETHYLENE GLYCOL [Concomitant]
     Route: 048
  6. BISACODYL [Concomitant]
     Route: 065
  7. ORAL CONTRACEPTIVES [Concomitant]
     Route: 065
  8. SUMATRIPTAN [Concomitant]
  9. PROMETHAZINE [Concomitant]
     Route: 065
  10. ACETAMINOPHEN [Concomitant]
     Route: 065
  11. LORAZEPAM [Concomitant]
     Route: 048

REACTIONS (9)
  - AREFLEXIA [None]
  - COMMUNICATION DISORDER [None]
  - DECREASED APPETITE [None]
  - MIGRAINE [None]
  - MYOCLONUS [None]
  - PARANOIA [None]
  - PSYCHOTIC DISORDER [None]
  - PYREXIA [None]
  - SOCIAL AVOIDANT BEHAVIOUR [None]
